FAERS Safety Report 7841145-3 (Version None)
Quarter: 2011Q4

REPORT INFORMATION
  Report Type: 
  Country: None (occurrence: None)
  Receive Date: 20111025
  Receipt Date: 20111020
  Transmission Date: 20120403
  Serious: Yes (Death, Hospitalization)
  Sender: FDA-Public Use
  Company Number: IE-BAYER-2011-100038

PATIENT
  Age: 55 Year
  Sex: Male
  Weight: 72 kg

DRUGS (1)
  1. SORAFENIB (RAF KINASE INHIBITOR) [Suspect]
     Dosage: 800 MG, UNK
     Route: 048
     Dates: start: 20110912, end: 20111016

REACTIONS (4)
  - LOWER RESPIRATORY TRACT INFECTION [None]
  - DEATH [None]
  - HYPOXIA [None]
  - DYSPHAGIA [None]
